FAERS Safety Report 23044063 (Version 1)
Quarter: 2023Q4

REPORT INFORMATION
  Report Type: Spontaneous
  Country: US (occurrence: US)
  Receive Date: 20231009
  Receipt Date: 20231009
  Transmission Date: 20240110
  Serious: No
  Sender: FDA-Public Use
  Company Number: US-SA-SAC20231003001285

PATIENT
  Age: 62 Year
  Sex: Female

DRUGS (3)
  1. DUPIXENT [Suspect]
     Active Substance: DUPILUMAB
     Indication: Eczema
     Dosage: 2 DF, 1X, ON DAY 1
     Route: 058
     Dates: start: 20230812, end: 20230812
  2. DUPIXENT [Suspect]
     Active Substance: DUPILUMAB
     Dosage: 300 MG, QOW, ON DAY 15
     Route: 058
     Dates: start: 20230826
  3. DUPIXENT [Suspect]
     Active Substance: DUPILUMAB
     Dosage: 300 MG, QOW
     Route: 058
     Dates: start: 20230909

REACTIONS (3)
  - Injection site rash [Recovered/Resolved]
  - Injection site urticaria [Recovered/Resolved]
  - Injection site warmth [Recovered/Resolved]

NARRATIVE: CASE EVENT DATE: 20230923
